FAERS Safety Report 5372803-0 (Version None)
Quarter: 2007Q2

REPORT INFORMATION
  Report Type: 
  Country: None (occurrence: None)
  Receive Date: 20070627
  Receipt Date: 20070616
  Transmission Date: 20071010
  Serious: Yes (Other)
  Sender: FDA-Public Use
  Company Number: BR-PFIZER INC-2007049228

PATIENT
  Sex: Male
  Weight: 71 kg

DRUGS (5)
  1. FRONTAL [Suspect]
     Indication: ANXIETY
     Route: 048
  2. ALPRAZOLAM [Suspect]
     Indication: ANXIETY
  3. CLOBAZAM [Suspect]
     Indication: ANXIETY
     Route: 048
  4. ENALAPRIL [Concomitant]
  5. AMOXICILLIN [Concomitant]

REACTIONS (12)
  - ANXIETY [None]
  - BLOOD PRESSURE INCREASED [None]
  - DIZZINESS [None]
  - DRUG DEPENDENCE [None]
  - DRUG INEFFECTIVE [None]
  - GASTRITIS [None]
  - HEADACHE [None]
  - LIVER DISORDER [None]
  - NAUSEA [None]
  - OESOPHAGITIS [None]
  - OSTEOARTHRITIS [None]
  - PHARYNGITIS [None]
